FAERS Safety Report 5176482-7 (Version None)
Quarter: 2006Q4

REPORT INFORMATION
  Report Type: 
  Country: None (occurrence: None)
  Receive Date: 20061215
  Receipt Date: 20061205
  Transmission Date: 20070319
  Serious: Yes (Hospitalization)
  Sender: FDA-Public Use
  Company Number: FR-SANOFI-SYNTHELABO-A02200603132

PATIENT
  Age: 53 Year
  Sex: Female

DRUGS (11)
  1. PLAQUENIL [Suspect]
     Indication: RHEUMATOID ARTHRITIS
     Dosage: UNK
     Route: 048
     Dates: start: 19990415, end: 19990720
  2. PLAQUENIL [Suspect]
     Route: 048
     Dates: start: 20000418, end: 20041115
  3. KETOPROFEN [Suspect]
     Indication: RHEUMATOID ARTHRITIS
     Route: 048
     Dates: start: 20010921
  4. ARAVA [Suspect]
     Indication: RHEUMATOID ARTHRITIS
     Route: 048
     Dates: start: 20040907, end: 20040909
  5. ARAVA [Suspect]
     Route: 048
     Dates: start: 20040910, end: 20041115
  6. OMEPRAZOLE [Suspect]
     Indication: PROPHYLAXIS
     Route: 048
  7. METHOTREXATE BELLON [Suspect]
     Indication: RHEUMATOID ARTHRITIS
     Route: 048
     Dates: start: 19990720, end: 19991018
  8. METHOTREXATE BELLON [Suspect]
     Route: 048
     Dates: start: 19991019
  9. METHOTREXATE BELLON [Suspect]
     Route: 048
     Dates: start: 20000119, end: 20041115
  10. ALLOCHRYSINE [Suspect]
     Indication: RHEUMATOID ARTHRITIS
     Route: 030
     Dates: start: 20041115, end: 20060706
  11. ALLOCHRYSINE [Suspect]
     Route: 030
     Dates: start: 20060706

REACTIONS (2)
  - CHRONIC LYMPHOCYTIC LEUKAEMIA [None]
  - LYMPHOCYTOSIS [None]
